FAERS Safety Report 5046970-2 (Version None)
Quarter: 2006Q2

REPORT INFORMATION
  Report Type: 
  Country: None (occurrence: None)
  Receive Date: 20060630
  Receipt Date: 20060622
  Transmission Date: 20061013
  Serious: Yes (Hospitalization)
  Sender: FDA-Public Use
  Company Number: 2006030488

PATIENT
  Age: 75 Year
  Sex: Male
  Weight: 72.8 kg

DRUGS (8)
  1. SUTENT [Suspect]
     Indication: GASTROINTESTINAL STROMAL TUMOUR
     Dosage: 50 MG
     Dates: start: 20060208
  2. LACTULOSE [Concomitant]
  3. SPIRONOLACTONE [Concomitant]
  4. FUROSEMIDE [Concomitant]
  5. RABEPRAZOLE SODIUM [Concomitant]
  6. MULTIVITAMIN [Concomitant]
  7. EXTRA STRENGTH TYLENOL [Concomitant]
  8. DIMETAPP DM (BROMPHENIRAMINE MALEATE, DEXTROMETHORPHAN HYDROBROMIDE, P [Concomitant]

REACTIONS (2)
  - ENDOCARDITIS [None]
  - PLEURAL EFFUSION [None]
